FAERS Safety Report 6694239-2 (Version None)
Quarter: 2010Q2

REPORT INFORMATION
  Report Type: 
  Country: None (occurrence: None)
  Receive Date: 20100423
  Receipt Date: 20100412
  Transmission Date: 20101027
  Serious: Yes (Other)
  Sender: FDA-Public Use
  Company Number: US-JNJFOC-20091008409

PATIENT
  Sex: Female
  Weight: 96.39 kg

DRUGS (2)
  1. REMICADE [Suspect]
     Indication: ANKYLOSING SPONDYLITIS
     Dosage: 500 MG TO 700 MG
     Route: 042
     Dates: start: 20080619, end: 20091023
  2. REMICADE [Suspect]
     Dosage: 500 MG TO 700 MG
     Route: 042
     Dates: start: 20080619, end: 20091023

REACTIONS (1)
  - EXOSTOSIS [None]
